FAERS Safety Report 21193701 (Version 1)
Quarter: 2022Q3

REPORT INFORMATION
  Report Type: Report from Study
  Country: IT (occurrence: IT)
  Receive Date: 20220810
  Receipt Date: 20220810
  Transmission Date: 20221026
  Serious: Yes (Hospitalization)
  Sender: FDA-Public Use
  Company Number: IT-BAXTER-2022BAX016692

PATIENT
  Age: 47 Year
  Sex: Male

DRUGS (6)
  1. DOXORUBICIN [Suspect]
     Active Substance: DOXORUBICIN
     Indication: B-cell lymphoma
     Dosage: 1 {DF}, FIRST CYCLE OF CHEMOTHERAPY R-DA-EPOCH, INTRAVENOUS (NOT OTHERWISE SPECIFIED)
     Route: 042
     Dates: start: 20220416, end: 20220421
  2. CYCLOPHOSPHAMIDE [Suspect]
     Active Substance: CYCLOPHOSPHAMIDE
     Indication: B-cell lymphoma
     Dosage: 1 {DF}, FIRST CYCLE OF CHEMOTHERAPY R-DA-EPOCH, INTRAVENOUS (NOT OTHERWISE SPECIFIED)
     Route: 042
     Dates: start: 20220416, end: 20220421
  3. ETOPOSIDE [Suspect]
     Active Substance: ETOPOSIDE
     Indication: B-cell lymphoma
     Dosage: 1 {DF}, FIRST CYCLE OF CHEMOTHERAPY R-DA-EPOCH, INTRAVENOUS (NOT OTHERWISE SPECIFIED)
     Route: 042
     Dates: start: 20220416, end: 20220421
  4. VINCRISTINE [Suspect]
     Active Substance: VINCRISTINE
     Indication: B-cell lymphoma
     Dosage: 1 {DF}, {CYCLICAL}, FIRST CYCLE OF CHEMOTHERAPY R-DA-EPOCH, INTRAVENOUS (NOT OTHERWISE SPECIFIED)
     Route: 042
     Dates: start: 20220416, end: 20220421
  5. RITUXIMAB [Suspect]
     Active Substance: RITUXIMAB
     Indication: B-cell lymphoma
     Dosage: 1 {DF}, {CYCLICAL}, FIRST CYCLE OF CHEMOTHERAPY R-DA-EPOCH, INTRAVENOUS (NOT OTHERWISE SPECIFIED)
     Route: 042
     Dates: start: 20220416, end: 20220421
  6. PREDNISONE [Concomitant]
     Active Substance: PREDNISONE
     Indication: B-cell lymphoma
     Dosage: FIRST CYCLE OF CHEMOTHERAPY R-DA-EPOCH
     Route: 065
     Dates: start: 20220416, end: 20220421

REACTIONS (3)
  - Gastrointestinal wall thickening [Recovering/Resolving]
  - Colitis [Recovering/Resolving]
  - Enteritis [Recovering/Resolving]

NARRATIVE: CASE EVENT DATE: 20220509
